FAERS Safety Report 9994843 (Version 6)
Quarter: 2014Q4

REPORT INFORMATION
  Report Type: Spontaneous
  Country: US (occurrence: None)
  Receive Date: 20140306
  Receipt Date: 20141014
  Transmission Date: 20150529
  Serious: Yes (Hospitalization)
  Sender: FDA-Public Use
  Company Number: US-000942

PATIENT
  Age: 60 Year
  Sex: Female

DRUGS (25)
  1. VITAMIN D3 [Concomitant]
     Active Substance: CHOLECALCIFEROL
  2. CLONIDINE. [Concomitant]
     Active Substance: CLONIDINE
  3. LEVOTHYROXINE [Concomitant]
     Active Substance: LEVOTHYROXINE
  4. AMLODIPINE BESYLATE. [Concomitant]
     Active Substance: AMLODIPINE BESYLATE
  5. ALBUTEROL SULFATE. [Concomitant]
     Active Substance: ALBUTEROL SULFATE
  6. I.V. SOLUTIONS (UNKNOWN) [Concomitant]
     Active Substance: UNSPECIFIED INGREDIENT
  7. CALCIUM WITH VITAMIN D [Concomitant]
     Active Substance: CALCIUM\VITAMIN D
  8. IMITREX [Concomitant]
     Active Substance: SUMATRIPTAN\SUMATRIPTAN SUCCINATE
  9. PROBIOTIC [Concomitant]
     Active Substance: PROBIOTICS NOS
  10. PROLIA [Concomitant]
     Active Substance: DENOSUMAB
  11. ALBUTEROL SULFATE. [Concomitant]
     Active Substance: ALBUTEROL SULFATE
  12. IBUPROFEN. [Concomitant]
     Active Substance: IBUPROFEN
  13. BENADRYL [Concomitant]
     Active Substance: DIPHENHYDRAMINE HYDROCHLORIDE
  14. NEXIUM [Concomitant]
     Active Substance: ESOMEPRAZOLE MAGNESIUM
  15. FERROUS SULFATE [Concomitant]
     Active Substance: FERROUS SULFATE\FERROUS SULFATE, DRIED
  16. OMEGA-3 ACIDS [Concomitant]
     Active Substance: OMEGA-3 FATTY ACIDS
  17. ONDANSETRON [Concomitant]
     Active Substance: ONDANSETRON
  18. AMLODIPINE [Concomitant]
     Active Substance: AMLODIPINE BESYLATE
  19. SUFENTANIL [Concomitant]
     Active Substance: SUFENTANIL
  20. SOLUTIONS FOR PARENTERAL NUTRITION (TO UNKNOWN) [Concomitant]
  21. GATTEX [Suspect]
     Active Substance: TEDUGLUTIDE\WATER
     Indication: SHORT-BOWEL SYNDROME
     Route: 058
     Dates: start: 20140102, end: 20140125
  22. VITAMIN B12 [Concomitant]
     Active Substance: CYANOCOBALAMIN
  23. FLUTICASONE [Concomitant]
     Active Substance: FLUTICASONE\FLUTICASONE PROPIONATE
  24. MULTIVITAMINS WITH MINERALS [Concomitant]
     Active Substance: MINERALS\VITAMINS
  25. GABAPENTIN. [Concomitant]
     Active Substance: GABAPENTIN

REACTIONS (14)
  - Nausea [None]
  - Dehydration [None]
  - Gastrointestinal pain [None]
  - Faecal vomiting [None]
  - Activities of daily living impaired [None]
  - Inappropriate schedule of drug administration [None]
  - Hiatus hernia [None]
  - Constipation [None]
  - Drug dose omission [None]
  - Irritable bowel syndrome [None]
  - Neck pain [None]
  - Dysphagia [None]
  - Back pain [None]
  - Dysgeusia [None]

NARRATIVE: CASE EVENT DATE: 20140115
